FAERS Safety Report 4830801-7 (Version None)
Quarter: 2005Q4

REPORT INFORMATION
  Report Type: 
  Country: None (occurrence: None)
  Receive Date: 20051117
  Receipt Date: 20050118
  Transmission Date: 20060501
  Serious: Yes (Hospitalization, Other)
  Sender: FDA-Public Use
  Company Number: US-MERCK-0501USA02987

PATIENT
  Age: 72 Year
  Sex: Female
  Weight: 75 kg

DRUGS (2)
  1. VIOXX [Suspect]
     Indication: RHEUMATOID ARTHRITIS
     Route: 048
     Dates: end: 20030101
  2. VIOXX [Suspect]
     Route: 048
     Dates: end: 20030101

REACTIONS (24)
  - ANGINA PECTORIS [None]
  - ANXIETY [None]
  - ARTHRALGIA [None]
  - ATRIAL FIBRILLATION [None]
  - ATRIAL TACHYCARDIA [None]
  - BREAST PAIN [None]
  - CEREBROVASCULAR ACCIDENT [None]
  - CHEST DISCOMFORT [None]
  - CHEST PAIN [None]
  - CHOLELITHIASIS [None]
  - CHRONIC OBSTRUCTIVE PULMONARY DISEASE [None]
  - COUGH [None]
  - DIARRHOEA [None]
  - DIZZINESS [None]
  - DRUG TOXICITY [None]
  - GASTROOESOPHAGEAL REFLUX DISEASE [None]
  - HEART RATE IRREGULAR [None]
  - HYPERHIDROSIS [None]
  - INTERNATIONAL NORMALISED RATIO INCREASED [None]
  - MYOCARDIAL INFARCTION [None]
  - NAUSEA [None]
  - PANIC ATTACK [None]
  - PRESCRIBED OVERDOSE [None]
  - SUPRAVENTRICULAR TACHYCARDIA [None]
